FAERS Safety Report 22348949 (Version 1)
Quarter: 2023Q2

REPORT INFORMATION
  Report Type: Spontaneous
  Country: NL (occurrence: NL)
  Receive Date: 20230522
  Receipt Date: 20230522
  Transmission Date: 20230722
  Serious: Yes (Hospitalization)
  Sender: FDA-Public Use
  Company Number: None

PATIENT
  Sex: Female
  Weight: 90 kg

DRUGS (3)
  1. OXAZEPAM [Suspect]
     Active Substance: OXAZEPAM
     Indication: Agitation
     Dosage: BRAND NAME NOT SPECIFIED
     Route: 065
  2. OXAZEPAM [Suspect]
     Active Substance: OXAZEPAM
     Indication: Insomnia
     Dosage: 8DD 10 MG, BRAND NAME NOT SPECIFIED
     Route: 065
     Dates: start: 20230316
  3. OXAZEPAM [Suspect]
     Active Substance: OXAZEPAM
     Indication: Restlessness

REACTIONS (4)
  - Fall [Unknown]
  - Dizziness [Recovered/Resolved]
  - Feeling abnormal [Unknown]
  - Asthenia [Unknown]
